FAERS Safety Report 11737446 (Version 1)
Quarter: 2015Q4

REPORT INFORMATION
  Report Type: Spontaneous
  Country: US (occurrence: US)
  Receive Date: 20151110
  Receipt Date: 20151110
  Transmission Date: 20160304
  Serious: No
  Sender: FDA-Public Use
  Company Number: US-ELI_LILLY_AND_COMPANY-US201205009591

PATIENT
  Sex: Female

DRUGS (2)
  1. FORTEO [Suspect]
     Active Substance: TERIPARATIDE
     Indication: OSTEOPOROSIS
     Dosage: 20 UG, QD
     Dates: start: 20120516, end: 20120531
  2. FORTEO [Suspect]
     Active Substance: TERIPARATIDE
     Dosage: 20 UG, QD
     Dates: start: 20120602, end: 20120621

REACTIONS (18)
  - Fibromyalgia [Unknown]
  - Feeling abnormal [Unknown]
  - Musculoskeletal stiffness [Recovering/Resolving]
  - Asthenia [Unknown]
  - Headache [Unknown]
  - Mental disorder [Unknown]
  - Abdominal pain [Not Recovered/Not Resolved]
  - Myalgia [Unknown]
  - Abdominal discomfort [Unknown]
  - Blood pressure increased [Unknown]
  - Thinking abnormal [Unknown]
  - Disturbance in attention [Unknown]
  - Malaise [Not Recovered/Not Resolved]
  - Pain in extremity [Unknown]
  - Dysphagia [Unknown]
  - Fatigue [Unknown]
  - Back pain [Unknown]
  - Feeling jittery [Unknown]

NARRATIVE: CASE EVENT DATE: 2012
